FAERS Safety Report 9412423 (Version 1)
Quarter: 2013Q3

REPORT INFORMATION
  Report Type: Spontaneous
  Country: FR (occurrence: FR)
  Receive Date: 20130722
  Receipt Date: 20130722
  Transmission Date: 20140515
  Serious: Yes (Hospitalization)
  Sender: FDA-Public Use
  Company Number: FR-ROCHE-1250554

PATIENT
  Age: 53 Year
  Sex: Male

DRUGS (9)
  1. VALIUM [Suspect]
     Indication: AGITATION
     Route: 030
     Dates: start: 20130615, end: 20130616
  2. TERCIAN [Suspect]
     Indication: AGITATION
     Route: 048
     Dates: start: 20130616, end: 20130616
  3. DEROXAT [Concomitant]
     Route: 048
     Dates: start: 201305, end: 201306
  4. BISOCE [Concomitant]
  5. LEVOTHYROX [Concomitant]
     Indication: HYPOTHYROIDISM
  6. INEXIUM [Concomitant]
  7. LYRICA [Concomitant]
  8. VITAMIN B12 [Concomitant]
  9. LOXAPAC [Concomitant]

REACTIONS (1)
  - Neuroleptic malignant syndrome [Recovered/Resolved]
